FAERS Safety Report 4761296-X (Version None)
Quarter: 2005Q3

REPORT INFORMATION
  Report Type: 
  Country: None (occurrence: None)
  Receive Date: 20050901
  Receipt Date: 20050826
  Transmission Date: 20060218
  Serious: Yes (Hospitalization, Other)
  Sender: FDA-Public Use
  Company Number: 2005-07-1988

PATIENT
  Age: 45 Year
  Sex: Male

DRUGS (7)
  1. PEG-INTERFERON ALFA-2B INJECTABLE [Suspect]
     Indication: HEPATITIS C
     Dosage: SEE IMAGE
     Dates: start: 20050527, end: 20050527
  2. PEG-INTERFERON ALFA-2B INJECTABLE [Suspect]
     Indication: HEPATITIS C
     Dosage: SEE IMAGE
     Dates: start: 20040920, end: 20050620
  3. PEG-INTERFERON ALFA-2B INJECTABLE [Suspect]
  4. RIBAVIRIN [Suspect]
     Indication: HEPATITIS C
     Dosage: SEE IMAGE
     Route: 048
     Dates: start: 20050527, end: 20050527
  5. RIBAVIRIN [Suspect]
     Indication: HEPATITIS C
     Dosage: SEE IMAGE
     Route: 048
     Dates: start: 20040920, end: 20050620
  6. RIBAVIRIN [Suspect]
  7. ZOLOFT [Concomitant]

REACTIONS (15)
  - COGNITIVE DISORDER [None]
  - CONFUSIONAL STATE [None]
  - DELIRIUM [None]
  - DEMENTIA [None]
  - DISORIENTATION [None]
  - EMOTIONAL DISORDER [None]
  - HEPATITIS C RNA POSITIVE [None]
  - IMMOBILE [None]
  - INAPPROPRIATE AFFECT [None]
  - INCORRECT DOSE ADMINISTERED [None]
  - MEMORY IMPAIRMENT [None]
  - MENTAL DISORDER DUE TO A GENERAL MEDICAL CONDITION [None]
  - NERVOUS SYSTEM DISORDER [None]
  - TREMOR [None]
  - VOMITING [None]
